FAERS Safety Report 12501865 (Version 1)
Quarter: 2016Q2

REPORT INFORMATION
  Report Type: Spontaneous
  Country: RU (occurrence: RU)
  Receive Date: 20160627
  Receipt Date: 20160627
  Transmission Date: 20160815
  Serious: Yes (Death)
  Sender: FDA-Public Use
  Company Number: RU-SA-2016SA116276

PATIENT
  Age: 53 Year
  Sex: Female

DRUGS (3)
  1. HERCEPTIN [Suspect]
     Active Substance: TRASTUZUMAB
     Route: 042
  2. CISPLATIN. [Suspect]
     Active Substance: CISPLATIN
     Route: 042
  3. TAXOTERE [Suspect]
     Active Substance: DOCETAXEL
     Route: 042

REACTIONS (3)
  - Febrile neutropenia [Fatal]
  - Thrombocytopenia [Fatal]
  - Anaemia [Fatal]
